FAERS Safety Report 9099353 (Version 1)
Quarter: 2013Q1

REPORT INFORMATION
  Report Type: Spontaneous
  Country: US (occurrence: US)
  Receive Date: 20130214
  Receipt Date: 20130214
  Transmission Date: 20140127
  Serious: Yes (Death, Life-Threatening, Hospitalization, Disabling, Other)
  Sender: FDA-Public Use
  Company Number: US-009507513-0609USA06726

PATIENT
  Sex: Male
  Weight: 80.74 kg

DRUGS (13)
  1. MK-0966 [Suspect]
     Indication: TENDONITIS
     Dosage: 25 MG, QD
     Route: 048
     Dates: start: 20040621, end: 200411
  2. FENTANYL [Concomitant]
  3. CLINDAMYCIN [Concomitant]
  4. ASPIRIN [Concomitant]
  5. COLACE [Concomitant]
     Dosage: PEG
  6. PROVENTIL [Concomitant]
  7. CHLORPROMAZINE HYDROCHLORIDE (+) MEPERIDINE HYDROCHLORIDE (+) PROMETHA [Concomitant]
     Dosage: PEG
  8. FLAGYL [Concomitant]
     Dosage: PEG
  9. AMOXICILLIN [Concomitant]
     Dosage: PEG
  10. CLARITHROMYCIN [Concomitant]
     Dosage: PEG
  11. BACLOFEN MYLAN [Concomitant]
     Dosage: PEG
  12. MK-0745 [Concomitant]
     Dosage: PEG
  13. ZOLOFT [Concomitant]
     Dosage: PEG

REACTIONS (35)
  - Brain stem infarction [Unknown]
  - Convulsion [Unknown]
  - Stroke in evolution [Unknown]
  - Cerebellar infarction [Unknown]
  - Death [Fatal]
  - Respiratory failure [Unknown]
  - Vertebral artery occlusion [Unknown]
  - Basilar artery occlusion [Unknown]
  - Locked-in syndrome [Unknown]
  - Aspiration [Unknown]
  - Hypopnoea [Unknown]
  - Synovitis [Recovered/Resolved]
  - Diverticulitis [Unknown]
  - Erythema [Unknown]
  - Candida infection [Unknown]
  - Bladder spasm [Unknown]
  - Hypercapnia [Unknown]
  - Excoriation [Unknown]
  - Neurogenic bladder [Unknown]
  - Acute hepatitis B [Unknown]
  - Calculus bladder [Unknown]
  - Hydrocele [Unknown]
  - Dermatitis [Recovered/Resolved]
  - Peptic ulcer [Unknown]
  - Medical device complication [Unknown]
  - Anaemia [Unknown]
  - Bradycardia [Unknown]
  - Culture urine positive [Unknown]
  - Blood culture positive [Unknown]
  - Blood glucose increased [Unknown]
  - Helicobacter test positive [Unknown]
  - Blood urea increased [Unknown]
  - Migraine [Unknown]
  - Anxiety [Unknown]
  - Depression [Unknown]
